FAERS Safety Report 25996742 (Version 2)
Quarter: 2025Q4

REPORT INFORMATION
  Report Type: Spontaneous
  Country: VN (occurrence: VN)
  Receive Date: 20251104
  Receipt Date: 20251120
  Transmission Date: 20260117
  Serious: Yes (Other)
  Sender: ASTELLAS
  Company Number: VN-ASTELLAS-2025-AER-059452

PATIENT
  Age: 22 Year
  Sex: Female

DRUGS (6)
  1. XOSPATA [Suspect]
     Active Substance: GILTERITINIB
     Indication: Acute myeloid leukaemia
     Dosage: DAY 1-28 CYCLE 1
     Route: 065
     Dates: start: 202507, end: 2025
  2. XOSPATA [Suspect]
     Active Substance: GILTERITINIB
     Indication: FLT3 gene mutation
     Dosage: CYCLE 2 1-28 DAYS
     Route: 065
     Dates: start: 2025
  3. AZACITIDINE [Concomitant]
     Active Substance: AZACITIDINE
     Indication: Acute myeloid leukaemia
     Dosage: DAY 1-7 CYCLE 1
     Route: 065
     Dates: start: 202507, end: 2025
  4. AZACITIDINE [Concomitant]
     Active Substance: AZACITIDINE
     Indication: FLT3 gene mutation
     Dosage: CYCLE 2?DAYS 1-7
     Route: 065
     Dates: start: 2025
  5. VENETOCLAX [Concomitant]
     Active Substance: VENETOCLAX
     Indication: Acute myeloid leukaemia
     Dosage: DAY 1-28 CYCLE 1
     Route: 065
     Dates: start: 202507, end: 2025
  6. VENETOCLAX [Concomitant]
     Active Substance: VENETOCLAX
     Indication: FLT3 gene mutation
     Dosage: DAYS 1-14?CYCLE 2
     Route: 065
     Dates: start: 2025

REACTIONS (4)
  - Myelosuppression [Recovering/Resolving]
  - Transaminases increased [Unknown]
  - Off label use [Unknown]
  - Product use issue [Unknown]

NARRATIVE: CASE EVENT DATE: 20250101
